FAERS Safety Report 6034708-1 (Version None)
Quarter: 2009Q1

REPORT INFORMATION
  Report Type: 
  Country: None (occurrence: None)
  Receive Date: 20090109
  Receipt Date: 20090109
  Transmission Date: 20090719
  Serious: Yes (Hospitalization)
  Sender: FDA-Public Use
  Company Number: None

PATIENT
  Sex: Male
  Weight: 41.5 kg

DRUGS (4)
  1. CYTARABINE [Suspect]
     Dosage: 10480 MG
  2. IDARUBICIN HCL [Suspect]
     Dosage: 45 MG
  3. LESTAURTINIB [Suspect]
     Dosage: 2378 MG
  4. AMBISOME [Concomitant]

REACTIONS (6)
  - ASCITES [None]
  - CAECITIS [None]
  - COLITIS [None]
  - FEBRILE NEUTROPENIA [None]
  - ILL-DEFINED DISORDER [None]
  - PERITONEAL DISORDER [None]
